FAERS Safety Report 12138783 (Version 2)
Quarter: 2016Q2

REPORT INFORMATION
  Report Type: Spontaneous
  Country: US (occurrence: US)
  Receive Date: 20160302
  Receipt Date: 20160407
  Transmission Date: 20160815
  Serious: Yes (Hospitalization, Other)
  Sender: FDA-Public Use
  Company Number: US-GLAXOSMITHKLINE-US2016030227

PATIENT
  Age: 76 Year
  Sex: Female

DRUGS (3)
  1. FLOVENT DISKUS [Suspect]
     Active Substance: FLUTICASONE PROPIONATE
     Indication: CHRONIC OBSTRUCTIVE PULMONARY DISEASE
     Dosage: 250 MCG
     Route: 055
     Dates: start: 2006
  2. FORADIL [Concomitant]
     Active Substance: FORMOTEROL FUMARATE
  3. ALBUTEROL + IPRATROPIUM [Concomitant]

REACTIONS (9)
  - Large intestinal obstruction [Recovering/Resolving]
  - Pulmonary thrombosis [Recovered/Resolved]
  - Cataract operation [Recovering/Resolving]
  - Laryngeal operation [Recovering/Resolving]
  - Colectomy [Recovering/Resolving]
  - Intervertebral disc protrusion [Not Recovered/Not Resolved]
  - Laryngeal neoplasm [Recovering/Resolving]
  - Cough [Recovered/Resolved]
  - Intervertebral disc operation [Not Recovered/Not Resolved]

NARRATIVE: CASE EVENT DATE: 201104
